FAERS Safety Report 14610637 (Version 1)
Quarter: 2018Q1

REPORT INFORMATION
  Report Type: Spontaneous
  Country: FR (occurrence: FR)
  Receive Date: 20180307
  Receipt Date: 20180307
  Transmission Date: 20180509
  Serious: Yes (Other)
  Sender: FDA-Public Use
  Company Number: FR-MERCK KGAA-2043201

PATIENT
  Age: 51 Year
  Sex: Female

DRUGS (1)
  1. NOVOTHYROX [Suspect]
     Active Substance: LEVOTHYROXINE SODIUM
     Indication: AUTOIMMUNE THYROIDITIS
     Route: 048
     Dates: start: 201703

REACTIONS (18)
  - Immune system disorder [None]
  - Palpitations [None]
  - Blood thyroid stimulating hormone increased [None]
  - Unevaluable event [None]
  - Malaise [None]
  - Drug dose omission [None]
  - Hyperthyroidism [None]
  - Blood test abnormal [None]
  - Insomnia [None]
  - Dizziness [None]
  - Visual impairment [None]
  - Weight decreased [None]
  - Dry skin [None]
  - Swelling face [None]
  - Irritability [None]
  - Limb discomfort [None]
  - Cardiac disorder [None]
  - Urticaria [None]

NARRATIVE: CASE EVENT DATE: 2017
